FAERS Safety Report 25824750 (Version 1)
Quarter: 2025Q3

REPORT INFORMATION
  Report Type: Spontaneous
  Country: EU (occurrence: EU)
  Receive Date: 20250919
  Receipt Date: 20250919
  Transmission Date: 20251020
  Serious: Yes (Other)
  Sender: BAYER HEALTHCARE PHARMACEUTICALS INC.
  Company Number: EU-BAYER-2025A120906

PATIENT
  Age: 72 Year
  Sex: Male

DRUGS (6)
  1. DAROLUTAMIDE [Suspect]
     Active Substance: DAROLUTAMIDE
     Indication: Hormone-dependent prostate cancer
  2. DOCETAXEL [Suspect]
     Active Substance: DOCETAXEL
  3. SOLIFENACIN\TAMSULOSIN [Concomitant]
     Active Substance: SOLIFENACIN\TAMSULOSIN
     Indication: Lower urinary tract symptoms
  4. Paracetamol /Pseudoefedrina sulfato /Dextrometorfano hidrobromuro [Concomitant]
     Indication: Osteoarthritis
  5. NAPROXEN [Concomitant]
     Active Substance: NAPROXEN
  6. NYSTATIN [Concomitant]
     Active Substance: NYSTATIN
     Indication: Mucosal inflammation

REACTIONS (3)
  - Neurotoxicity [None]
  - Asthenia [None]
  - Skin fissures [None]
